FAERS Safety Report 6946933-3 (Version None)
Quarter: 2010Q3

REPORT INFORMATION
  Report Type: 
  Country: None (occurrence: None)
  Receive Date: 20100827
  Receipt Date: 20090909
  Transmission Date: 20110219
  Serious: No
  Sender: FDA-Public Use
  Company Number: US-ABBOTT-09P-163-0593213-00

PATIENT
  Sex: Female
  Weight: 57.658 kg

DRUGS (4)
  1. NIASPAN [Suspect]
     Indication: BLOOD CHOLESTEROL INCREASED
     Dates: start: 20070101, end: 20090101
  2. NIASPAN [Suspect]
     Dates: start: 20090601, end: 20090728
  3. SYNTHROID [Concomitant]
     Indication: HYPOTHYROIDISM
  4. FLU SHOT [Concomitant]
     Indication: IMMUNISATION
     Dosage: UNKNOWN
     Dates: start: 20081101, end: 20081101

REACTIONS (2)
  - AGEUSIA [None]
  - ANOSMIA [None]
